FAERS Safety Report 21829020 (Version 2)
Quarter: 2023Q1

REPORT INFORMATION
  Report Type: Spontaneous
  Country: US (occurrence: US)
  Receive Date: 20230106
  Receipt Date: 20230109
  Transmission Date: 20230418
  Serious: No
  Sender: FDA-Public Use
  Company Number: US-002147023-NVSC2023US002371

PATIENT
  Sex: Male

DRUGS (1)
  1. NEVANAC [Suspect]
     Active Substance: NEPAFENAC
     Indication: Product used for unknown indication
     Dosage: 3 DRP, QD
     Route: 065
     Dates: start: 2020

REACTIONS (3)
  - Eye injury [Unknown]
  - Eye complication associated with device [Unknown]
  - Product availability issue [Unknown]

NARRATIVE: CASE EVENT DATE: 20220801
